FAERS Safety Report 17042553 (Version 2)
Quarter: 2019Q4

REPORT INFORMATION
  Report Type: Spontaneous
  Country: US (occurrence: US)
  Receive Date: 20191118
  Receipt Date: 20191227
  Transmission Date: 20200122
  Serious: Yes (Other)
  Sender: FDA-Public Use
  Company Number: US-PFIZER INC-2019491540

PATIENT
  Age: 78 Year
  Sex: Female
  Weight: 90.7 kg

DRUGS (1)
  1. TOVIAZ [Suspect]
     Active Substance: FESOTERODINE FUMARATE
     Dosage: 10 MG, ONCE A DAY
     Dates: start: 201401

REACTIONS (4)
  - Drug dependence [Not Recovered/Not Resolved]
  - Overdose [Unknown]
  - Blood creatinine increased [Unknown]
  - Blood bilirubin increased [Unknown]

NARRATIVE: CASE EVENT DATE: 201401
